FAERS Safety Report 9428441 (Version 1)
Quarter: 2013Q3

REPORT INFORMATION
  Report Type: Report from Study
  Country: US (occurrence: US)
  Receive Date: 20130730
  Receipt Date: 20130730
  Transmission Date: 20140515
  Serious: No
  Sender: FDA-Public Use
  Company Number: US-ABBOTT-12P-163-1014698-00

PATIENT
  Age: 56 Year
  Sex: Male
  Weight: 72.64 kg

DRUGS (5)
  1. NIASPAN (COATED) [Suspect]
     Indication: HIGH DENSITY LIPOPROTEIN
     Dosage: EVERY NIGHT
     Dates: start: 201202
  2. EXFORGE [Concomitant]
     Indication: PRODUCT USED FOR UNKNOWN INDICATION
  3. GLIMEPERIDE [Concomitant]
     Indication: PRODUCT USED FOR UNKNOWN INDICATION
  4. METFORMIN [Concomitant]
     Indication: PRODUCT USED FOR UNKNOWN INDICATION
  5. METOPROLOL [Concomitant]
     Indication: PRODUCT USED FOR UNKNOWN INDICATION

REACTIONS (1)
  - Diarrhoea haemorrhagic [Not Recovered/Not Resolved]
